FAERS Safety Report 8879275 (Version 1)
Quarter: 2012Q4

REPORT INFORMATION
  Report Type: 
  Country: US (occurrence: US)
  Receive Date: 20121031
  Receipt Date: 20121031
  Transmission Date: 20130627
  Serious: No
  Sender: FDA-Public Use
  Company Number: US-VERTEX PHARMACEUTICAL INC.-2012-023803

PATIENT
  Sex: Male

DRUGS (3)
  1. VX-950 [Suspect]
     Indication: HEPATITIS C
     Dosage: UNK
     Route: 048
     Dates: start: 20121011
  2. RIBAPAK [Suspect]
     Dosage: UNK
     Route: 048
     Dates: start: 20121011
  3. PEGASYS [Suspect]

REACTIONS (1)
  - Diarrhoea [Not Recovered/Not Resolved]
